FAERS Safety Report 7144905-X (Version None)
Quarter: 2010Q4

REPORT INFORMATION
  Report Type: 
  Country: None (occurrence: None)
  Receive Date: 20101208
  Receipt Date: 20101130
  Transmission Date: 20110411
  Serious: Yes (Other)
  Sender: FDA-Public Use
  Company Number: JP-ASTRAZENECA-2010SE57253

PATIENT
  Age: 75 Year
  Sex: Female

DRUGS (8)
  1. IRESSA [Suspect]
     Indication: LUNG NEOPLASM MALIGNANT
     Route: 048
     Dates: start: 20100910, end: 20101101
  2. ALFASULY [Concomitant]
     Dosage: DOSE UNKNOWN
     Route: 048
  3. SELBEX [Concomitant]
     Dosage: DOSE UNKNOWN
     Route: 048
  4. FERROUS CITRATE [Concomitant]
     Dosage: DOSE UNKNOWN
     Route: 048
  5. FOSAMAC [Concomitant]
     Dosage: DOSE UNKNOWN
     Route: 048
  6. BEZAFIBRATE [Concomitant]
     Dosage: DOSE UNKNOWN
     Route: 065
  7. FUROSEMIDE [Concomitant]
     Dosage: DOSE UNKNOWN
     Route: 065
  8. MAGMITT [Concomitant]
     Dosage: DOSE UNKNOWN
     Route: 048

REACTIONS (1)
  - ANAEMIA [None]
